FAERS Safety Report 9055623 (Version 2)
Quarter: 2013Q2

REPORT INFORMATION
  Report Type: Spontaneous
  Country: US (occurrence: US)
  Receive Date: 20130206
  Receipt Date: 20130408
  Transmission Date: 20140414
  Serious: Yes (Hospitalization)
  Sender: FDA-Public Use
  Company Number: US-US-EMD SERONO, INC.-7190662

PATIENT
  Age: 52 Year
  Sex: Male

DRUGS (3)
  1. SEROSTIM [(SOMATROPIN (RDNA ORIGIN) FOR INJECTION)] [Suspect]
     Indication: CACHEXIA
     Dates: start: 201208, end: 201212
  2. SEROSTIM [(SOMATROPIN (RDNA ORIGIN) FOR INJECTION)] [Suspect]
     Dates: start: 2013
  3. LOPRESSOR [Concomitant]
     Indication: HYPERTENSION
     Dates: end: 201303

REACTIONS (2)
  - Pneumonia staphylococcal [Recovered/Resolved]
  - Bronchitis [Recovered/Resolved]
